FAERS Safety Report 8797345 (Version 1)
Quarter: 2012Q4

REPORT INFORMATION
  Report Type: 
  Country: US (occurrence: US)
  Receive Date: 20120920
  Receipt Date: 20120920
  Transmission Date: 20130627
  Serious: No
  Sender: FDA-Public Use
  Company Number: US-PFIZER INC-2012232143

PATIENT
  Sex: Female

DRUGS (2)
  1. LIPITOR [Suspect]
     Dosage: UNK
     Dates: start: 20060315, end: 20120331
  2. ACCUPRIL [Suspect]
     Dosage: UNK
     Dates: start: 20060315, end: 20120331

REACTIONS (1)
  - Abdominal pain upper [Unknown]
